FAERS Safety Report 23430404 (Version 1)
Quarter: 2024Q1

REPORT INFORMATION
  Report Type: Spontaneous
  Country: FR (occurrence: FR)
  Receive Date: 20240123
  Receipt Date: 20240123
  Transmission Date: 20240409
  Serious: Yes (Other)
  Sender: FDA-Public Use
  Company Number: FR-CHEPLA-2024000801

PATIENT
  Sex: Female
  Weight: 59 kg

DRUGS (1)
  1. HYDROXYUREA [Suspect]
     Active Substance: HYDROXYUREA
     Indication: Sickle cell disease
     Dosage: 1000 EVERY NIGHT BEFORE BEDTIME?DAILY DOSE: 1000 MILLIGRAM
     Dates: start: 202106, end: 202304

REACTIONS (1)
  - Raynaud^s phenomenon [Unknown]
